FAERS Safety Report 5990971-4 (Version None)
Quarter: 2008Q4

REPORT INFORMATION
  Report Type: 
  Country: None (occurrence: None)
  Receive Date: 20081211
  Receipt Date: 20080422
  Transmission Date: 20090506
  Serious: No
  Sender: FDA-Public Use
  Company Number: US-AMGEN-KDL275911

PATIENT
  Sex: Female

DRUGS (2)
  1. ENBREL [Suspect]
     Indication: RHEUMATOID ARTHRITIS
     Route: 058
     Dates: start: 20080320
  2. METHOTREXATE [Concomitant]
     Dates: start: 20030101

REACTIONS (9)
  - CONTUSION [None]
  - DIZZINESS [None]
  - FALL [None]
  - INJECTION SITE HAEMATOMA [None]
  - LOCAL SWELLING [None]
  - NAUSEA [None]
  - PRODUCTIVE COUGH [None]
  - PYREXIA [None]
  - VOMITING [None]
